FAERS Safety Report 14456086 (Version 5)
Quarter: 2018Q4

REPORT INFORMATION
  Report Type: Report from Study
  Country: US (occurrence: US)
  Receive Date: 20180130
  Receipt Date: 20181116
  Transmission Date: 20190204
  Serious: Yes (Life-Threatening, Hospitalization, Other)
  Sender: FDA-Public Use
  Company Number: PHEH2018US002625

PATIENT
  Sex: Female

DRUGS (2)
  1. ENTRESTO [Suspect]
     Active Substance: SACUBITRIL\VALSARTAN
     Dosage: 1 DF (SACUBITRIL 24 MG, VALSARTAN 26 MG), UNK
     Route: 048
  2. ENTRESTO [Suspect]
     Active Substance: SACUBITRIL\VALSARTAN
     Indication: PRODUCT USED FOR UNKNOWN INDICATION
     Dosage: 1 DF (SACUBITRIL 49 MG, VALSARTAN 51 MG), UNK
     Route: 048

REACTIONS (11)
  - Heart rate increased [Recovering/Resolving]
  - Gait disturbance [Unknown]
  - Weight increased [Unknown]
  - Dizziness [Unknown]
  - Irritable bowel syndrome [Unknown]
  - Hypertension [Recovering/Resolving]
  - Fibromyalgia [Unknown]
  - Blood pressure decreased [Unknown]
  - Balance disorder [Unknown]
  - Thirst [Unknown]
  - Constipation [Unknown]
